FAERS Safety Report 9721418 (Version 2)
Quarter: 2014Q1

REPORT INFORMATION
  Report Type: Spontaneous
  Country: HU (occurrence: HU)
  Receive Date: 20131129
  Receipt Date: 20140122
  Transmission Date: 20141002
  Serious: Yes (Other)
  Sender: FDA-Public Use
  Company Number: ALCN2013HU005917

PATIENT
  Age: 80 Year
  Sex: Female
  Weight: 80 kg

DRUGS (21)
  1. AZOPT [Suspect]
     Indication: GLAUCOMA
     Dosage: 1 GTT, BID
     Route: 047
     Dates: start: 2004
  2. LOKREN [Concomitant]
     Dosage: 1 DF, QD
  3. TICLID [Concomitant]
     Dosage: 1 DF, QD
  4. BRINALDIX [Concomitant]
     Dosage: 1 DF, BID
  5. L-THYROXIN [Concomitant]
     Dosage: 0.5 DF, BID
  6. B-VITAMIN KOMPLEX [Concomitant]
     Dosage: 1 DF, QD
  7. CHONDRO.SUL.SOD [Concomitant]
     Dosage: 1 DF, QD
  8. KALDYUM [Concomitant]
     Dosage: 1 DF, QD
  9. RIVOTRIL [Concomitant]
     Dosage: 0.5 MG, TID
  10. REXETIN [Concomitant]
     Dosage: 1.5 DF, QD
     Dates: end: 201309
  11. REXETIN [Concomitant]
     Dosage: 1 DF, QD
     Dates: start: 201309
  12. BERES [Concomitant]
     Dosage: 20 GTT, QD
  13. C-VIT [Concomitant]
     Dosage: 1 DF, QD
  14. ATORVOX [Concomitant]
     Dosage: 1 DF, QD
  15. EZETIMIBA [Concomitant]
     Dosage: 1 DF, QD
  16. LERCATON [Concomitant]
     Dosage: 1 DF, QD
  17. CARDURA [Concomitant]
     Dosage: 1 DF, QD
  18. CARDURA [Concomitant]
     Dosage: 1 DF, BID
  19. MICARDIS [Concomitant]
     Dosage: 1 DF, QD
  20. SILEGON [Concomitant]
     Dosage: 1 DF, QD
  21. VEROSPIRON [Concomitant]
     Dosage: 1 DF, QD

REACTIONS (5)
  - Tachycardia [Recovering/Resolving]
  - Arrhythmia [Recovering/Resolving]
  - Hypertension [Recovering/Resolving]
  - Eye haemorrhage [Recovered/Resolved]
  - Sleep disorder [Recovering/Resolving]
